FAERS Safety Report 10436237 (Version 2)
Quarter: 2014Q4

REPORT INFORMATION
  Report Type: Spontaneous
  Country: SE (occurrence: SE)
  Receive Date: 20140908
  Receipt Date: 20141230
  Transmission Date: 20150528
  Serious: Yes (Life-Threatening, Hospitalization)
  Sender: FDA-Public Use
  Company Number: SE-NOVOPROD-420861

PATIENT
  Age: 60 Year
  Sex: Female

DRUGS (18)
  1. ESIDREX [Concomitant]
     Active Substance: HYDROCHLOROTHIAZIDE
  2. OMEPRAZOLE. [Concomitant]
     Active Substance: OMEPRAZOLE
  3. OXIS TURBOHALER [Concomitant]
  4. PULMICORT NASAL TU [Concomitant]
  5. OXIS TURBOHALER [Concomitant]
  6. PULMICORT NASAL AQ [Concomitant]
  7. FELODIPINE. [Concomitant]
     Active Substance: FELODIPINE
  8. LEVAXIN [Concomitant]
     Active Substance: LEVOTHYROXINE SODIUM
  9. METFORMIN [Concomitant]
     Active Substance: METFORMIN HYDROCHLORIDE
  10. ACETYLCYSTEINE. [Concomitant]
     Active Substance: ACETYLCYSTEINE
  11. ELOCON [Concomitant]
     Active Substance: MOMETASONE FUROATE
  12. ZOLPIDEM [Concomitant]
     Active Substance: ZOLPIDEM\ZOLPIDEM TARTRATE
  13. LEVEMIR [Suspect]
     Active Substance: INSULIN DETEMIR
     Indication: DIABETES MELLITUS
     Dosage: 12 E
     Dates: start: 20101028
  14. CETIRIZINE [Concomitant]
     Active Substance: CETIRIZINE HYDROCHLORIDE
  15. ENALAPRIL [Concomitant]
     Active Substance: ENALAPRIL
  16. TROMBYL [Concomitant]
     Active Substance: ASPIRIN
  17. METOPROLOL [Concomitant]
     Active Substance: METOPROLOL
  18. BRICANYL [Concomitant]
     Active Substance: TERBUTALINE SULFATE

REACTIONS (2)
  - Suicide attempt [Unknown]
  - Toxicity to various agents [Unknown]

NARRATIVE: CASE EVENT DATE: 20130425
